FAERS Safety Report 7769291-3 (Version None)
Quarter: 2011Q3

REPORT INFORMATION
  Report Type: 
  Country: None (occurrence: None)
  Receive Date: 20110922
  Receipt Date: 20110913
  Transmission Date: 20111222
  Serious: Yes (Other)
  Sender: FDA-Public Use
  Company Number: US-ROCHE-798559

PATIENT
  Sex: Female

DRUGS (2)
  1. PEGINTERFERON ALFA-2A [Suspect]
     Route: 065
     Dates: start: 20110707
  2. RIBAVIRIN [Suspect]
     Dosage: TO BE GIVEN IN DIVIDED DOSES:
     Route: 065
     Dates: start: 20110707

REACTIONS (5)
  - PLATELET COUNT DECREASED [None]
  - ANAEMIA [None]
  - FATIGUE [None]
  - HEPATIC CIRRHOSIS [None]
  - ANXIETY [None]
